FAERS Safety Report 7606221-9 (Version None)
Quarter: 2011Q3

REPORT INFORMATION
  Report Type: 
  Country: None (occurrence: None)
  Receive Date: 20110713
  Receipt Date: 20110630
  Transmission Date: 20111222
  Serious: Yes (Life-Threatening, Hospitalization)
  Sender: FDA-Public Use
  Company Number: US-BAYER-201040909NA

PATIENT
  Age: 43 Year
  Sex: Female
  Weight: 117.91 kg

DRUGS (2)
  1. FERROUS SULFATE TAB [Concomitant]
     Indication: MINERAL SUPPLEMENTATION
  2. YAZ [Suspect]
     Indication: MENSTRUAL CYCLE MANAGEMENT
     Dosage: UNK
     Route: 048
     Dates: start: 20071201, end: 20081101

REACTIONS (7)
  - ASTHENIA [None]
  - PULMONARY EMBOLISM [None]
  - THROMBOSIS [None]
  - FATIGUE [None]
  - PAIN [None]
  - DEEP VEIN THROMBOSIS [None]
  - GENERAL PHYSICAL HEALTH DETERIORATION [None]
